FAERS Safety Report 18815208 (Version 1)
Quarter: 2021Q1

REPORT INFORMATION
  Report Type: Spontaneous
  Country: US (occurrence: US)
  Receive Date: 20210131
  Receipt Date: 20210131
  Transmission Date: 20210419
  Serious: Yes (Disabling)
  Sender: FDA-Public Use
  Company Number: None

PATIENT
  Age: 27 Year
  Sex: Female
  Weight: 58.97 kg

DRUGS (3)
  1. ZINC. [Concomitant]
     Active Substance: ZINC
  2. PARAGARD T 380A [Suspect]
     Active Substance: COPPER
     Dates: start: 20200619, end: 20201207
  3. ZEOLITE [Concomitant]

REACTIONS (1)
  - Nausea [None]

NARRATIVE: CASE EVENT DATE: 20201207
